FAERS Safety Report 11820090 (Version 1)
Quarter: 2015Q4

REPORT INFORMATION
  Report Type: Spontaneous
  Country: US (occurrence: US)
  Receive Date: 20151210
  Receipt Date: 20151210
  Transmission Date: 20160305
  Serious: Yes (Other)
  Sender: FDA-Public Use
  Company Number: US-HOSPIRA-2542063

PATIENT
  Age: 82 Year
  Sex: Male
  Weight: 69.85 kg

DRUGS (1)
  1. LEVOPHED [Suspect]
     Active Substance: NOREPINEPHRINE BITARTRATE
     Indication: HYPOTENSION
     Dosage: TITRATED DOSE, CONTINUOUS
     Route: 041
     Dates: start: 20140912

REACTIONS (3)
  - Product quality issue [Recovered/Resolved]
  - Heart rate decreased [Unknown]
  - Drug effect incomplete [Recovered/Resolved]

NARRATIVE: CASE EVENT DATE: 20140912
